FAERS Safety Report 5892556-7 (Version None)
Quarter: 2008Q3

REPORT INFORMATION
  Report Type: 
  Country: None (occurrence: None)
  Receive Date: 20080923
  Receipt Date: 20080912
  Transmission Date: 20090109
  Serious: Yes (Other)
  Sender: FDA-Public Use
  Company Number: US-ELI_LILLY_AND_COMPANY-US200809003211

PATIENT
  Sex: Male

DRUGS (1)
  1. ALIMTA [Suspect]

REACTIONS (2)
  - OROPHARYNGEAL BLISTERING [None]
  - PARANEOPLASTIC SYNDROME [None]
